FAERS Safety Report 6020449-3 (Version None)
Quarter: 2008Q4

REPORT INFORMATION
  Report Type: 
  Country: None (occurrence: None)
  Receive Date: 20081226
  Receipt Date: 20081218
  Transmission Date: 20090506
  Serious: Yes (Hospitalization)
  Sender: FDA-Public Use
  Company Number: ES-ROCHE-603732

PATIENT
  Age: 37 Year
  Sex: Male

DRUGS (6)
  1. CELLCEPT [Suspect]
     Indication: RENAL TRANSPLANT
     Route: 048
     Dates: start: 20031001
  2. PROGRAF [Interacting]
     Indication: RENAL TRANSPLANT
     Route: 048
     Dates: start: 20040301
  3. PREDNISONE [Interacting]
     Indication: RENAL TRANSPLANT
     Route: 048
     Dates: start: 20081001
  4. OMEPRAZOLE [Concomitant]
     Indication: DRUG USE FOR UNKNOWN INDICATION
     Route: 048
  5. ARANESP [Concomitant]
     Dosage: DOSAGE FROM: PREFILLED SYRINGES
     Route: 058
  6. SEGURIL [Concomitant]
     Route: 048

REACTIONS (2)
  - CYTOMEGALOVIRUS INFECTION [None]
  - DRUG INTERACTION [None]
